FAERS Safety Report 17799467 (Version 1)
Quarter: 2020Q2

REPORT INFORMATION
  Report Type: Spontaneous
  Country: US (occurrence: US)
  Receive Date: 20200518
  Receipt Date: 20200518
  Transmission Date: 20200714
  Serious: Yes (Hospitalization)
  Sender: FDA-Public Use
  Company Number: NVSC2020US133485

PATIENT
  Sex: Female

DRUGS (3)
  1. CYCLOPHOSPHAMIDE. [Suspect]
     Active Substance: CYCLOPHOSPHAMIDE
     Indication: CERVIX CARCINOMA
     Dosage: 60 MG/KG, Q24H
     Route: 042
     Dates: start: 20180906, end: 20180912
  2. PROLEUKIN [Suspect]
     Active Substance: ALDESLEUKIN
     Indication: CERVIX CARCINOMA
     Dosage: 600000 IU/KG, Q12H
     Route: 042
     Dates: start: 20180914, end: 20180916
  3. FLUDARABINE PHOSPHATE. [Suspect]
     Active Substance: FLUDARABINE PHOSPHATE
     Indication: CERVIX CARCINOMA
     Dosage: 25 MG/M2, Q24H
     Route: 042
     Dates: start: 20180908, end: 20180912

REACTIONS (6)
  - Haematuria [Recovered/Resolved]
  - Nausea [Unknown]
  - Abdominal pain [Unknown]
  - Urinary retention [Unknown]
  - Vomiting [Unknown]
  - Thrombosis [Unknown]

NARRATIVE: CASE EVENT DATE: 20190110
